FAERS Safety Report 6125995-X (Version None)
Quarter: 2009Q1

REPORT INFORMATION
  Report Type: 
  Country: None (occurrence: None)
  Receive Date: 20090318
  Receipt Date: 20090302
  Transmission Date: 20090719
  Serious: Yes (Hospitalization)
  Sender: FDA-Public Use
  Company Number: DSA_33266_2009

PATIENT
  Age: 74 Year
  Sex: Male

DRUGS (14)
  1. ENALAPRIL MALEATE [Suspect]
     Indication: DRUG USE FOR UNKNOWN INDICATION
     Dosage: (DF)
  2. APIXABAN [Suspect]
     Indication: THROMBOSIS PROPHYLAXIS
     Dosage: (10 MG QD ORAL)
     Route: 048
     Dates: start: 20080523
  3. PLACEBO (PLACEBO) [Suspect]
     Indication: THROMBOSIS PROPHYLAXIS
     Dosage: (DF ORAL)
     Route: 048
  4. SPIRONOLACTONE [Suspect]
     Indication: DRUG USE FOR UNKNOWN INDICATION
     Dosage: (DF)
  5. PANWARFIN [Suspect]
     Indication: THROMBOSIS PROPHYLAXIS
     Dosage: (5 MG QD ORAL)
     Route: 048
     Dates: start: 20080523
  6. CARVEDILOL [Concomitant]
  7. SODIUM BICARBONATE [Concomitant]
  8. RESONIUM CALCIUM [Concomitant]
  9. TORSEMIDE [Concomitant]
  10. SIMVASTATIN [Concomitant]
  11. ALLOPURINOL [Concomitant]
  12. LEVOTHYROXINE [Concomitant]
  13. HYDROXOCOBALAMIN [Concomitant]
  14. NITROGLYCERIN [Concomitant]

REACTIONS (6)
  - BLOOD CREATINE INCREASED [None]
  - CHEST PAIN [None]
  - DYSPNOEA [None]
  - HYPERKALAEMIA [None]
  - LOWER RESPIRATORY TRACT INFECTION [None]
  - TROPONIN INCREASED [None]
